FAERS Safety Report 12805696 (Version 1)
Quarter: 2016Q4

REPORT INFORMATION
  Report Type: Spontaneous
  Country: US (occurrence: US)
  Receive Date: 20161003
  Receipt Date: 20161003
  Transmission Date: 20170207
  Serious: Yes (Disabling)
  Sender: FDA-Public Use
  Company Number: None

PATIENT
  Age: 64 Year
  Sex: Female
  Weight: 55.35 kg

DRUGS (6)
  1. FISH OIL [Concomitant]
     Active Substance: FISH OIL
  2. CINNAMON. [Concomitant]
     Active Substance: CINNAMON
  3. RELPAX [Concomitant]
     Active Substance: ELETRIPTAN HYDROBROMIDE
  4. COLESTIPOL [Concomitant]
     Active Substance: COLESTIPOL
  5. NAPROXEN/ASPIRIN [Concomitant]
  6. BREO ELLIPTA [Suspect]
     Active Substance: FLUTICASONE FUROATE\VILANTEROL TRIFENATATE
     Indication: ASTHMA

REACTIONS (3)
  - Epistaxis [None]
  - Bronchial secretion retention [None]
  - Throat irritation [None]

NARRATIVE: CASE EVENT DATE: 20161003
